FAERS Safety Report 6242130-8 (Version None)
Quarter: 2009Q2

REPORT INFORMATION
  Report Type: 
  Country: None (occurrence: None)
  Receive Date: 20090622
  Receipt Date: 20090622
  Transmission Date: 20091009
  Serious: No
  Sender: FDA-Public Use
  Company Number: None

PATIENT
  Age: 44 Year
  Sex: Female
  Weight: 69.8539 kg

DRUGS (2)
  1. ZOFRAN [Suspect]
     Indication: NAUSEA
     Dosage: 8 MG IV X 1
     Route: 042
  2. ZOFRAN [Suspect]
     Indication: VOMITING
     Dosage: 8 MG IV X 1
     Route: 042

REACTIONS (2)
  - DYSKINESIA [None]
  - DYSTONIA [None]
